FAERS Safety Report 5674658-3 (Version None)
Quarter: 2008Q1

REPORT INFORMATION
  Report Type: 
  Country: None (occurrence: None)
  Receive Date: 20080320
  Receipt Date: 20080314
  Transmission Date: 20080703
  Serious: Yes (Hospitalization)
  Sender: FDA-Public Use
  Company Number: A0715521A

PATIENT
  Age: 36 Year
  Sex: Male

DRUGS (2)
  1. LAMICTAL [Suspect]
     Indication: MAJOR DEPRESSION
     Dosage: 50MG PER DAY
     Route: 048
  2. WELLBUTRIN XL [Concomitant]

REACTIONS (2)
  - ABDOMINAL PAIN UPPER [None]
  - CONDITION AGGRAVATED [None]
